FAERS Safety Report 6360659-9 (Version None)
Quarter: 2009Q3

REPORT INFORMATION
  Report Type: 
  Country: None (occurrence: None)
  Receive Date: 20090918
  Receipt Date: 20090904
  Transmission Date: 20100115
  Serious: Yes (Hospitalization)
  Sender: FDA-Public Use
  Company Number: DE-BIOGENIDEC-2009BI020645

PATIENT
  Sex: Female

DRUGS (2)
  1. TYSABRI [Suspect]
     Indication: MULTIPLE SCLEROSIS
     Dosage: BASED ON DELIVERY DATE AND WEEKS GESTATION AT DELIVERY
     Route: 042
     Dates: start: 20080117, end: 20090120
  2. IODINE [Concomitant]

REACTIONS (2)
  - PREGNANCY [None]
  - PROLONGED LABOUR [None]
